FAERS Safety Report 14585722 (Version 2)
Quarter: 2018Q1

REPORT INFORMATION
  Report Type: Report from Study
  Country: BR (occurrence: BR)
  Receive Date: 20180301
  Receipt Date: 20180313
  Transmission Date: 20180509
  Serious: Yes (Death, Hospitalization, Other)
  Sender: FDA-Public Use
  Company Number: BR-ROCHE-1860740

PATIENT
  Sex: Male
  Weight: 66 kg

DRUGS (3)
  1. MORPHINE [Concomitant]
     Active Substance: MORPHINE
     Indication: PAIN
  2. DIPYRONE [Concomitant]
     Active Substance: DIPYRONE
     Indication: PAIN
  3. AVASTIN [Suspect]
     Active Substance: BEVACIZUMAB
     Indication: COLORECTAL CANCER
     Route: 065

REACTIONS (12)
  - Death [Fatal]
  - Lung neoplasm malignant [Unknown]
  - Malignant neoplasm progression [Unknown]
  - Pulmonary embolism [Unknown]
  - Disease progression [Not Recovered/Not Resolved]
  - Urinary tract infection [Not Recovered/Not Resolved]
  - Renal pain [Not Recovered/Not Resolved]
  - Device related infection [Not Recovered/Not Resolved]
  - Immobile [Not Recovered/Not Resolved]
  - Drug ineffective [Unknown]
  - Tumour compression [Not Recovered/Not Resolved]
  - Pain [Not Recovered/Not Resolved]
